FAERS Safety Report 6878120-1 (Version None)
Quarter: 2010Q2

REPORT INFORMATION
  Report Type: 
  Country: None (occurrence: None)
  Receive Date: 20100616
  Receipt Date: 20100315
  Transmission Date: 20101027
  Serious: No
  Sender: FDA-Public Use
  Company Number: DSA_42798_2010

PATIENT
  Sex: Female

DRUGS (1)
  1. XENAZINE [Suspect]
     Indication: HUNTINGTON'S CHOREA
     Dosage: 12.5 MG BID ORAL
     Route: 048
     Dates: start: 20090401, end: 20100217

REACTIONS (2)
  - FEELING ABNORMAL [None]
  - PERSONALITY CHANGE [None]
